FAERS Safety Report 8703717 (Version 4)
Quarter: 2013Q2

REPORT INFORMATION
  Report Type: Report from Study
  Country: US (occurrence: US)
  Receive Date: 20120803
  Receipt Date: 20130516
  Transmission Date: 20140414
  Serious: Yes (Other)
  Sender: FDA-Public Use
  Company Number: US-UCBSA-062647

PATIENT
  Age: 80 Year
  Sex: Female
  Weight: 46 kg

DRUGS (10)
  1. CIMZIA [Suspect]
     Indication: CROHN^S DISEASE
     Dosage: 400 MG AT 0,2,4 WEKS  AND THEN EVERY 4 WEEKS.
     Route: 058
     Dates: start: 20090831, end: 20090914
  2. TYLENOL ES [Concomitant]
     Indication: PAIN
     Dosage: 1000 MG Q6H (EVERY SIX HOURS) PRN
     Route: 048
     Dates: start: 20100421
  3. CALCIUM CARBONATE/VITAMIN D [Concomitant]
     Indication: SUPPLEMENTATION THERAPY
  4. CALCIUM CARBONATE/VITAMIN D [Concomitant]
     Indication: SUPPLEMENTATION THERAPY
     Dosage: 2 BID
     Route: 048
     Dates: start: 20100422
  5. METOPROLOL [Concomitant]
     Indication: HYPERTENSION
     Route: 048
     Dates: start: 20100422
  6. MULTIVITAMIN [Concomitant]
     Indication: SUPPLEMENTATION THERAPY
     Dosage: DAILY DOSE : 1/DAY
     Route: 048
     Dates: start: 2009
  7. NYSTATIN [Concomitant]
     Indication: FUNGAL INFECTION
     Dosage: FORM : POWDER
     Route: 061
     Dates: start: 20100422
  8. VANIQA [Concomitant]
     Indication: HAIR GROWTH ABNORMAL
     Dosage: 13.9%, TO CHIN AND UPPER LIP
     Route: 061
     Dates: start: 20120309
  9. CITRACAL D [Concomitant]
     Dosage: 400 MG-500 IU
     Dates: start: 201004
  10. METAPROLOL XL [Concomitant]
     Dates: start: 201004

REACTIONS (1)
  - Breast cancer [Recovered/Resolved]
